FAERS Safety Report 6343938-0 (Version None)
Quarter: 2009Q3

REPORT INFORMATION
  Report Type: 
  Country: None (occurrence: None)
  Receive Date: 20090908
  Receipt Date: 20090828
  Transmission Date: 20100115
  Serious: Yes (Other)
  Sender: FDA-Public Use
  Company Number: JP-PFIZER INC-2009253786

PATIENT
  Age: 76 Year

DRUGS (7)
  1. LIPITOR [Suspect]
     Indication: TYPE IIA HYPERLIPIDAEMIA
     Dosage: 30 MG, UNK
     Route: 048
     Dates: start: 20050101, end: 20090324
  2. LIPITOR [Suspect]
     Dosage: 30 MG, UNKNOWN/D
     Route: 048
     Dates: start: 20090514, end: 20090618
  3. HYALURONIC ACID [Suspect]
     Dosage: UNK
     Route: 048
     Dates: end: 20090324
  4. MAGNESIUM OXIDE [Concomitant]
     Dosage: UNK
     Route: 048
     Dates: start: 20050101
  5. PARIET [Concomitant]
     Dosage: UNK
     Route: 048
  6. SELBEX [Concomitant]
     Dosage: UNK
     Route: 048
  7. TAKEPRON [Concomitant]
     Dosage: UNK
     Dates: start: 20090428, end: 20090618

REACTIONS (3)
  - ALANINE AMINOTRANSFERASE INCREASED [None]
  - ASPARTATE AMINOTRANSFERASE INCREASED [None]
  - HEPATIC FUNCTION ABNORMAL [None]
